FAERS Safety Report 11775332 (Version 2)
Quarter: 2015Q4

REPORT INFORMATION
  Report Type: Spontaneous
  Country: US (occurrence: US)
  Receive Date: 20151125
  Receipt Date: 20151208
  Transmission Date: 20160304
  Serious: Yes (Hospitalization)
  Sender: FDA-Public Use
  Company Number: US-ACTELION-A-US2015-117920

PATIENT
  Age: 60 Year
  Sex: Female

DRUGS (5)
  1. LETAIRIS [Concomitant]
     Active Substance: AMBRISENTAN
  2. TREPROSTINIL DIOLAMIN [Concomitant]
     Active Substance: TREPROSTINIL DIOLAMINE
  3. VELETRI [Suspect]
     Active Substance: EPOPROSTENOL
     Indication: PULMONARY HYPERTENSION
     Dosage: 8 NG/KG, PER MIN
     Route: 042
     Dates: start: 20150324
  4. VELETRI [Suspect]
     Active Substance: EPOPROSTENOL
     Dosage: 12 NG/KG, PER MIN
     Route: 042
  5. ADCIRCA [Concomitant]
     Active Substance: TADALAFIL

REACTIONS (11)
  - Headache [Unknown]
  - Rash [Unknown]
  - Palpitations [Unknown]
  - Fluid overload [Unknown]
  - Oedema [Unknown]
  - Musculoskeletal pain [Unknown]
  - Fatigue [Unknown]
  - Dyspnoea [Unknown]
  - Pain in jaw [Unknown]
  - Oedema peripheral [Unknown]
  - Fluid retention [Unknown]
